FAERS Safety Report 19678864 (Version 1)
Quarter: 2021Q3

REPORT INFORMATION
  Report Type: Spontaneous
  Country: US (occurrence: US)
  Receive Date: 20210809
  Receipt Date: 20210809
  Transmission Date: 20211014
  Serious: No
  Sender: FDA-Public Use
  Company Number: US-ABBVIE-20K-163-3559587-00

PATIENT
  Sex: Female
  Weight: 72.64 kg

DRUGS (7)
  1. ZYPREXA [Suspect]
     Active Substance: OLANZAPINE
     Indication: AUTISM SPECTRUM DISORDER
  2. CAPLYTA [Suspect]
     Active Substance: LUMATEPERONE
     Indication: AUTISM SPECTRUM DISORDER
     Route: 048
     Dates: start: 20200729, end: 2020
  3. REXULTI [Concomitant]
     Active Substance: BREXPIPRAZOLE
     Indication: HALLUCINATION, AUDITORY
  4. DEPAKOTE [Suspect]
     Active Substance: DIVALPROEX SODIUM
     Indication: AUTISM SPECTRUM DISORDER
  5. CAPLYTA [Suspect]
     Active Substance: LUMATEPERONE
     Indication: SCHIZOPHRENIA
  6. DEPAKOTE [Suspect]
     Active Substance: DIVALPROEX SODIUM
     Indication: SCHIZOPHRENIA
     Dosage: WITH APPLE SAUCE
     Route: 065
     Dates: start: 2010
  7. ZYPREXA [Suspect]
     Active Substance: OLANZAPINE
     Indication: SCHIZOPHRENIA
     Dosage: ORAL DISINTEGRATING TABLET
     Route: 048
     Dates: start: 2016

REACTIONS (5)
  - Weight increased [Not Recovered/Not Resolved]
  - Polyuria [Recovered/Resolved]
  - Diarrhoea [Recovering/Resolving]
  - Blood sodium decreased [Recovering/Resolving]
  - Inappropriate antidiuretic hormone secretion [Recovering/Resolving]

NARRATIVE: CASE EVENT DATE: 2020
